FAERS Safety Report 8336604-3 (Version None)
Quarter: 2012Q2

REPORT INFORMATION
  Report Type: 
  Country: None (occurrence: None)
  Receive Date: 20120504
  Receipt Date: 20120424
  Transmission Date: 20120825
  Serious: Yes (Hospitalization)
  Sender: FDA-Public Use
  Company Number: ES-PFIZER INC-2012085264

PATIENT
  Age: 74 Year
  Sex: Female

DRUGS (6)
  1. FUROSEMIDE [Concomitant]
     Dosage: UNK
     Dates: start: 20100501
  2. DIGOXIN [Interacting]
     Indication: ATRIAL FLUTTER
     Dosage: UNK
     Route: 048
     Dates: start: 20100501, end: 20100614
  3. COZAAR [Concomitant]
     Dosage: UNK
  4. LYRICA [Concomitant]
     Dosage: UNK
     Dates: start: 20091201
  5. AMIODARONE HCL [Suspect]
     Indication: ATRIAL FLUTTER
     Dosage: 200 MG TABLETS (DOSE AND FREQUENCY UNKNOWN)
     Route: 048
     Dates: start: 20100501, end: 20100611
  6. BISOPROLOL FUMARATE [Concomitant]
     Dosage: UNK
     Dates: start: 20100501, end: 20100614

REACTIONS (3)
  - DRUG INTERACTION [None]
  - TOXICITY TO VARIOUS AGENTS [None]
  - BRADYARRHYTHMIA [None]
